FAERS Safety Report 5108329-9 (Version None)
Quarter: 2006Q3

REPORT INFORMATION
  Report Type: 
  Country: None (occurrence: None)
  Receive Date: 20060914
  Receipt Date: 20060914
  Transmission Date: 20061208
  Serious: Yes (Hospitalization)
  Sender: FDA-Public Use
  Company Number: None

PATIENT
  Age: 62 Year
  Sex: Male

DRUGS (3)
  1. HYDROMORPHONE HCL [Suspect]
     Indication: PAIN
     Dosage: Q15 MIN WITH4 HR LINIT OF 4 MO
     Dates: start: 20060705, end: 20060705
  2. LORAZEPAM [Concomitant]
  3. OXYCODONE AND ACETAMINOPHEN [Concomitant]

REACTIONS (2)
  - AGGRESSION [None]
  - DELIRIUM [None]
